FAERS Safety Report 22615247 (Version 1)
Quarter: 2023Q2

REPORT INFORMATION
  Report Type: Spontaneous
  Country: US (occurrence: US)
  Receive Date: 20230619
  Receipt Date: 20230619
  Transmission Date: 20230721
  Serious: No
  Sender: FDA-Public Use
  Company Number: US-009507513-2306USA008484

PATIENT
  Sex: Female
  Weight: 136.05 kg

DRUGS (14)
  1. KEYTRUDA [Suspect]
     Active Substance: PEMBROLIZUMAB
     Dosage: UNK
  2. LENVATINIB MESYLATE [Suspect]
     Active Substance: LENVATINIB MESYLATE
     Indication: Endometrial neoplasm
     Dosage: 10 MILLIGRAM, QD
     Route: 048
     Dates: start: 202301
  3. AMLODIPINE BESYLATE [Concomitant]
     Active Substance: AMLODIPINE BESYLATE
  4. OSTEO-BI-FLEX [Concomitant]
  5. RIBOFLAVIN [Concomitant]
     Active Substance: RIBOFLAVIN
  6. VITAMIN C [Concomitant]
     Active Substance: ASCORBIC ACID
  7. MAGNESIUM OXIDE [Concomitant]
     Active Substance: MAGNESIUM OXIDE
  8. VITAMINS [Concomitant]
     Active Substance: VITAMINS
  9. TYLENOL [Concomitant]
     Active Substance: ACETAMINOPHEN
  10. FUROSEMIDE [Concomitant]
     Active Substance: FUROSEMIDE
  11. OLMESARTAN MEDOXOMIL [Concomitant]
     Active Substance: OLMESARTAN MEDOXOMIL
  12. CARVEDILOL [Concomitant]
     Active Substance: CARVEDILOL
  13. ELIQUIS [Concomitant]
     Active Substance: APIXABAN
  14. LEVOTHYROXINE SODIUM [Concomitant]
     Active Substance: LEVOTHYROXINE SODIUM

REACTIONS (4)
  - Blood pressure inadequately controlled [Recovered/Resolved]
  - Ureteral stent insertion [Unknown]
  - Dyspnoea [Unknown]
  - Incorrect dose administered [Unknown]

NARRATIVE: CASE EVENT DATE: 20230101
